FAERS Safety Report 8618704-3 (Version None)
Quarter: 2012Q3

REPORT INFORMATION
  Report Type: 
  Country: None (occurrence: None)
  Receive Date: 20120824
  Receipt Date: 20120814
  Transmission Date: 20120928
  Serious: Yes (Other)
  Sender: FDA-Public Use
  Company Number: CA-JNJFOC-20120806933

PATIENT
  Sex: Female
  Weight: 43.09 kg

DRUGS (3)
  1. REMICADE [Suspect]
     Route: 042
     Dates: start: 20110221
  2. BENADRYL [Concomitant]
     Indication: PREMEDICATION
     Route: 042
  3. REMICADE [Suspect]
     Indication: CROHN'S DISEASE
     Route: 042
     Dates: start: 20120814

REACTIONS (5)
  - CHEST DISCOMFORT [None]
  - ERYTHEMA [None]
  - ANXIETY [None]
  - INFUSION RELATED REACTION [None]
  - BLOOD PRESSURE DECREASED [None]
